FAERS Safety Report 16541105 (Version 1)
Quarter: 2019Q3

REPORT INFORMATION
  Report Type: Report from Study
  Country: CA (occurrence: CA)
  Receive Date: 20190708
  Receipt Date: 20190708
  Transmission Date: 20191004
  Serious: No
  Sender: FDA-Public Use
  Company Number: CA-JNJFOC-20190630337

PATIENT
  Age: 58 Year
  Sex: Male
  Weight: 62.3 kg

DRUGS (6)
  1. CAL D [Concomitant]
  2. URSODIOL. [Concomitant]
     Active Substance: URSODIOL
     Route: 048
  3. VIT A [Concomitant]
     Route: 048
  4. ACIDE FOLIQUE [Concomitant]
     Active Substance: FOLIC ACID
     Route: 048
  5. REMICADE [Suspect]
     Active Substance: INFLIXIMAB
     Indication: CROHN^S DISEASE
     Route: 042
     Dates: start: 20150210
  6. METHOTREXATE. [Concomitant]
     Active Substance: METHOTREXATE
     Route: 048

REACTIONS (1)
  - Prostatic specific antigen increased [Unknown]
